FAERS Safety Report 7754120-4 (Version None)
Quarter: 2011Q3

REPORT INFORMATION
  Report Type: 
  Country: None (occurrence: None)
  Receive Date: 20110915
  Receipt Date: 20110310
  Transmission Date: 20111222
  Serious: No
  Sender: FDA-Public Use
  Company Number: US-BAYER-2011-022544

PATIENT
  Age: 37 Year
  Sex: Female
  Weight: 61.224 kg

DRUGS (1)
  1. MAGNEVIST [Suspect]
     Indication: NUCLEAR MAGNETIC RESONANCE IMAGING
     Dosage: 12CC, RT A/C
     Route: 042
     Dates: start: 20110310, end: 20110310

REACTIONS (3)
  - DYSPNOEA [None]
  - URTICARIA [None]
  - WHEEZING [None]
